FAERS Safety Report 5176916-8 (Version None)
Quarter: 2006Q4

REPORT INFORMATION
  Report Type: 
  Country: None (occurrence: None)
  Receive Date: 20061218
  Receipt Date: 20061214
  Transmission Date: 20070319
  Serious: Yes (Death)
  Sender: FDA-Public Use
  Company Number: PHMT2006CA02297

PATIENT
  Age: 38 Year
  Sex: Female

DRUGS (4)
  1. ATIVAN [Concomitant]
  2. RITALIN [Suspect]
  3. DRUG THERAPY NOS [Concomitant]
  4. DRUG THERAPY NOS [Concomitant]

REACTIONS (1)
  - COMPLETED SUICIDE [None]
